FAERS Safety Report 4442745-3 (Version None)
Quarter: 2004Q3

REPORT INFORMATION
  Report Type: 
  Country: None (occurrence: None)
  Receive Date: 20040903
  Receipt Date: 20040615
  Transmission Date: 20050211
  Serious: Yes (Other)
  Sender: FDA-Public Use
  Company Number: 2004UW12424

PATIENT
  Age: 62 Year
  Sex: Male
  Weight: 88.4514 kg

DRUGS (14)
  1. CRESTOR [Suspect]
     Indication: HYPERCHOLESTEROLAEMIA
     Dosage: 20 MG PO
     Route: 048
     Dates: start: 20040501
  2. POTASSIUM [Concomitant]
  3. GLUCOPHAGE [Concomitant]
  4. NORVASC [Concomitant]
  5. ISOSORBIDE [Concomitant]
  6. COZAAR [Concomitant]
  7. ZOLOFT [Concomitant]
  8. NEXIUM [Concomitant]
  9. FUROSEMIDE [Concomitant]
  10. METOPROLOL [Concomitant]
  11. MINOXIDIL [Concomitant]
  12. ACCUPRIL [Concomitant]
  13. SPIRONOLACTONE [Concomitant]
  14. AVANDIA [Concomitant]

REACTIONS (3)
  - COUGH [None]
  - PHARYNGOLARYNGEAL PAIN [None]
  - RESPIRATORY TRACT CONGESTION [None]
